FAERS Safety Report 5356702-6 (Version None)
Quarter: 2007Q2

REPORT INFORMATION
  Report Type: 
  Country: None (occurrence: None)
  Receive Date: 20070614
  Receipt Date: 20070608
  Transmission Date: 20071010
  Serious: Yes (Disabling)
  Sender: FDA-Public Use
  Company Number: US-ASTRAZENECA-2007UW13866

PATIENT
  Age: 68 Year
  Sex: Female

DRUGS (6)
  1. ARIMIDEX [Suspect]
     Route: 048
     Dates: start: 20060101, end: 20070101
  2. LEXAPRO [Concomitant]
  3. ACIPHEX [Concomitant]
  4. LIPITOR [Concomitant]
  5. ACTONEL [Concomitant]
  6. ECOTRIN [Concomitant]

REACTIONS (2)
  - ARTHRALGIA [None]
  - ERYTHEMA [None]
